FAERS Safety Report 8470751-0 (Version None)
Quarter: 2012Q2

REPORT INFORMATION
  Report Type: 
  Country: None (occurrence: None)
  Receive Date: 20120627
  Receipt Date: 20120619
  Transmission Date: 20120825
  Serious: Yes (Hospitalization)
  Sender: FDA-Public Use
  Company Number: US-BAYER-2012-062309

PATIENT
  Age: 35 Year
  Sex: Female
  Weight: 93.878 kg

DRUGS (4)
  1. LEVOTHYROXINE [Concomitant]
     Dosage: 0.125 MCG, UNK
     Route: 048
     Dates: start: 20090610
  2. IBUPROFEN [Concomitant]
     Dosage: 800 MG, UNK
     Route: 048
     Dates: start: 20090810
  3. YAZ [Suspect]
  4. YASMIN [Suspect]

REACTIONS (1)
  - DEEP VEIN THROMBOSIS [None]
